FAERS Safety Report 22176167 (Version 5)
Quarter: 2023Q4

REPORT INFORMATION
  Report Type: Report from Study
  Country: US (occurrence: US)
  Receive Date: 20230405
  Receipt Date: 20231229
  Transmission Date: 20240110
  Serious: Yes (Disabling, Other)
  Sender: FDA-Public Use
  Company Number: US-002147023-NVSC2023US077634

PATIENT
  Age: 37 Year
  Sex: Female
  Weight: 63.5 kg

DRUGS (3)
  1. COSENTYX [Suspect]
     Active Substance: SECUKINUMAB
     Indication: Psoriatic arthropathy
     Dosage: 2 ML, QMO
     Route: 065
     Dates: start: 202209
  2. COSENTYX [Suspect]
     Active Substance: SECUKINUMAB
     Dosage: 2 DOSAGE FORM, QMO (150 MG)
     Route: 065
     Dates: start: 20230401
  3. COSENTYX [Suspect]
     Active Substance: SECUKINUMAB
     Dosage: 2 ML, QMO
     Route: 065

REACTIONS (4)
  - Device malfunction [Recovering/Resolving]
  - Psoriatic arthropathy [Unknown]
  - Accidental exposure to product [Unknown]
  - Drug dose omission by device [Unknown]

NARRATIVE: CASE EVENT DATE: 20230401
